FAERS Safety Report 22527497 (Version 1)
Quarter: 2023Q2

REPORT INFORMATION
  Report Type: Spontaneous
  Country: US (occurrence: US)
  Receive Date: 20230606
  Receipt Date: 20230606
  Transmission Date: 20230722
  Serious: No
  Sender: FDA-Public Use
  Company Number: US-BRAINTREE LABORATORIES, INC.-2023BTE00253

PATIENT
  Age: 56 Year
  Sex: Female
  Weight: 79.365 kg

DRUGS (2)
  1. SUTAB [Suspect]
     Active Substance: MAGNESIUM SULFATE\POTASSIUM CHLORIDE\SODIUM SULFATE
     Indication: Colonoscopy
     Dosage: 1 X 12 TABLETS, 1X
     Route: 048
     Dates: start: 20230412
  2. UNSPECIFIED INGREDIENT [Concomitant]
     Active Substance: UNSPECIFIED INGREDIENT

REACTIONS (1)
  - Vomiting [Recovering/Resolving]

NARRATIVE: CASE EVENT DATE: 20230412
